FAERS Safety Report 4600032-4 (Version None)
Quarter: 2005Q1

REPORT INFORMATION
  Report Type: 
  Country: None (occurrence: None)
  Receive Date: 20050303
  Receipt Date: 20050214
  Transmission Date: 20050727
  Serious: No
  Sender: FDA-Public Use
  Company Number: 10306

PATIENT
  Age: 62 Year
  Sex: Female

DRUGS (8)
  1. PAMIDRONATE DISODIUM [Suspect]
     Indication: BREAST CANCER
  2. ZOLEDRONIC ACID [Suspect]
     Indication: BREAST CANCER
  3. CYCLOPHOSPHAMIDE [Concomitant]
  4. METHOTREXATE [Concomitant]
  5. FLUOROURACIL [Concomitant]
  6. TAMOXIFEN CITRATE [Concomitant]
  7. LETROZOLE [Concomitant]
  8. EXEMESTANE [Concomitant]

REACTIONS (2)
  - JAW DISORDER [None]
  - OSTEONECROSIS [None]
